FAERS Safety Report 9269507 (Version 1)
Quarter: 2013Q2

REPORT INFORMATION
  Report Type: Spontaneous
  Country: US (occurrence: US)
  Receive Date: 20130503
  Receipt Date: 20130503
  Transmission Date: 20140414
  Serious: Yes (Hospitalization)
  Sender: FDA-Public Use
  Company Number: US-BAYER-2013-053160

PATIENT
  Age: 36 Year
  Sex: Female

DRUGS (13)
  1. YAZ [Suspect]
     Dosage: UNK
     Dates: start: 20091018, end: 20111007
  2. GIANVI [Suspect]
     Dosage: UNK
     Dates: start: 20091018, end: 20111007
  3. IBUPROFEN [Concomitant]
     Dosage: 600 MG, UNK
     Dates: start: 20110731
  4. IBUPROFEN [Concomitant]
     Dosage: UNK
     Dates: start: 20110924
  5. BENZONATATE [Concomitant]
     Dosage: 100 MG, UNK
     Dates: start: 20110924
  6. VITAMIN D [Concomitant]
     Dosage: 50000 IU, UNK
     Dates: start: 20110924
  7. CLOTRIMAZOL [Concomitant]
     Dosage: 1 %, UNK
     Dates: start: 20110924
  8. CLOTRIMAZOL [Concomitant]
  9. PREDNISONE [Concomitant]
     Dosage: 10 MG, UNK
     Dates: start: 20111006
  10. NAPROXEN [Concomitant]
     Dosage: 550 MG, UNK
     Dates: start: 20111006
  11. METHOCARBAMOL [Concomitant]
     Dosage: 500 MG, UNK
  12. BUPROPION [Concomitant]
     Dosage: 150 MG, UNK
     Dates: start: 20110921
  13. MOTRIN [Concomitant]

REACTIONS (2)
  - Deep vein thrombosis [Recovered/Resolved]
  - Pain in extremity [Recovered/Resolved]
